FAERS Safety Report 9122800 (Version 1)
Quarter: 2013Q1

REPORT INFORMATION
  Report Type: Spontaneous
  Country: US (occurrence: None)
  Receive Date: 20130131
  Receipt Date: 20130131
  Transmission Date: 20140127
  Serious: Yes (Hospitalization)
  Sender: FDA-Public Use
  Company Number: 2013SUN00042

PATIENT
  Age: 62 Year
  Sex: Male

DRUGS (1)
  1. GEMCITABINE [Suspect]
     Indication: PANCREATIC CARCINOMA STAGE I

REACTIONS (6)
  - Pericardial effusion [None]
  - Pulmonary toxicity [None]
  - Eosinophilia [None]
  - Oedema peripheral [None]
  - Hypertensive emergency [None]
  - Blood glucose abnormal [None]
